FAERS Safety Report 9121445 (Version 2)
Quarter: 2013Q2

REPORT INFORMATION
  Report Type: Spontaneous
  Country: US (occurrence: US)
  Receive Date: 20130225
  Receipt Date: 20130410
  Transmission Date: 20140414
  Serious: No
  Sender: FDA-Public Use
  Company Number: US-PFIZER INC-2013068249

PATIENT
  Age: 38 Year
  Sex: Female
  Weight: 143 kg

DRUGS (6)
  1. LYRICA [Suspect]
     Indication: FIBROMYALGIA
     Dosage: 100 MG, 3X/DAY
     Route: 048
  2. LYRICA [Suspect]
     Dosage: 200 MG, 3X/DAY
     Route: 048
  3. NEURONTIN [Suspect]
     Indication: FIBROMYALGIA
     Dosage: 600 MG, 3X/DAY
     Route: 048
  4. NEURONTIN [Suspect]
     Dosage: 600 MG, AS NEEDED
     Route: 048
  5. TRAMADOL HCL [Suspect]
     Indication: FIBROMYALGIA
     Dosage: 50 MG, 3X/DAY
     Route: 048
  6. TRAMADOL HCL [Suspect]
     Dosage: 50 MG, AS NEEDED
     Route: 048

REACTIONS (2)
  - Drug ineffective [Unknown]
  - Intentional drug misuse [Unknown]
